FAERS Safety Report 5133933-1 (Version None)
Quarter: 2006Q4

REPORT INFORMATION
  Report Type: 
  Country: None (occurrence: None)
  Receive Date: 20061023
  Receipt Date: 20061023
  Transmission Date: 20070319
  Serious: Yes (Other)
  Sender: FDA-Public Use
  Company Number: None

PATIENT
  Sex: Female

DRUGS (2)
  1. LEXAPRO [Suspect]
     Indication: ANXIETY
     Dosage: 10 MG TABLET  ONCE DAILY  PO
     Route: 048
     Dates: start: 20061002, end: 20061009
  2. LEXAPRO [Suspect]
     Indication: DEPRESSION
     Dosage: 10 MG TABLET  ONCE DAILY  PO
     Route: 048
     Dates: start: 20061002, end: 20061009

REACTIONS (1)
  - MYDRIASIS [None]
